FAERS Safety Report 15356548 (Version 1)
Quarter: 2018Q3

REPORT INFORMATION
  Report Type: Other
  Country: IT (occurrence: IT)
  Receive Date: 20180906
  Receipt Date: 20180906
  Transmission Date: 20181010
  Serious: Yes (Hospitalization, Other)
  Sender: FDA-Public Use
  Company Number: IT-MACLEODS PHARMACEUTICALS US LTD-MAC2018016514

PATIENT

DRUGS (2)
  1. LEVOFLOXACIN. [Suspect]
     Active Substance: LEVOFLOXACIN
     Indication: PNEUMONIA
     Dosage: 500 MILLIGRAM, QD
     Route: 048
     Dates: start: 20180725, end: 20180728
  2. CEFTRIAXONE. [Suspect]
     Active Substance: CEFTRIAXONE
     Indication: PNEUMONIA
     Dosage: 1 GRAM, QD
     Route: 030
     Dates: start: 20180725, end: 20180726

REACTIONS (2)
  - Toxic skin eruption [Unknown]
  - Urticaria [Unknown]

NARRATIVE: CASE EVENT DATE: 20180726
